FAERS Safety Report 6348966-7 (Version None)
Quarter: 2009Q3

REPORT INFORMATION
  Report Type: 
  Country: None (occurrence: None)
  Receive Date: 20090911
  Receipt Date: 20090903
  Transmission Date: 20100115
  Serious: Yes (Other)
  Sender: FDA-Public Use
  Company Number: IT-NOVOPROD-285902

PATIENT
  Age: 82 Year
  Sex: Male

DRUGS (4)
  1. ACTRAPID NOVOLET [Suspect]
     Indication: DIABETES MELLITUS
     Dosage: 10 U MORNING+15 U LUNCH+7 U DINNER
  2. ACTRAPID NOVOLET [Suspect]
     Dosage: 7 U MORNING+10 U LUNCH+5 U DINNER
  3. ISOPHANE INSULIN [Concomitant]
     Indication: DIABETES MELLITUS
     Dosage: 15 U, QD
  4. ISOPHANE INSULIN [Concomitant]
     Dosage: 10 U, QD

REACTIONS (4)
  - LEFT VENTRICULAR FAILURE [None]
  - OEDEMA [None]
  - PLEURAL EFFUSION [None]
  - PULMONARY CONGESTION [None]
